FAERS Safety Report 9174193 (Version 1)
Quarter: 2013Q1

REPORT INFORMATION
  Report Type: Spontaneous
  Country: US (occurrence: None)
  Receive Date: 20130320
  Receipt Date: 20130320
  Transmission Date: 20140127
  Serious: Yes (Hospitalization)
  Sender: FDA-Public Use
  Company Number: None

PATIENT
  Age: 61 Year
  Sex: Female
  Weight: 113.4 kg

DRUGS (2)
  1. METHYLPREDNISOLONE ACETATE [Suspect]
     Indication: CEREBROVASCULAR STENOSIS
     Dosage: 80MG/ML PRN PERINEURAL
     Route: 053
     Dates: start: 20120717, end: 20120926
  2. METHYLPREDNISOLONE ACETATE [Suspect]
     Indication: INTERVERTEBRAL DISC DEGENERATION
     Dosage: 80MG/ML PRN PERINEURAL
     Route: 053
     Dates: start: 20120717, end: 20120926

REACTIONS (7)
  - Back pain [None]
  - Pain in extremity [None]
  - Injection site bruising [None]
  - Meningitis fungal [None]
  - Anaemia [None]
  - Renal failure acute [None]
  - Hallucination [None]
